FAERS Safety Report 8988290 (Version 1)
Quarter: 2012Q4

REPORT INFORMATION
  Report Type: 
  Country: US (occurrence: US)
  Receive Date: 20121227
  Receipt Date: 20121227
  Transmission Date: 20130627
  Serious: Yes (Other)
  Sender: FDA-Public Use
  Company Number: US-JNJFOC-20121210503

PATIENT
  Sex: Female

DRUGS (4)
  1. ORTHO TRI CYCLEN [Suspect]
     Indication: PRODUCT USED FOR UNKNOWN INDICATION
     Dosage: period 1: on days 12-14
     Route: 048
  2. ORTHO TRI-CYCLEN LO [Suspect]
     Indication: PRODUCT USED FOR UNKNOWN INDICATION
     Dosage: During period 2: on days 29-42 and on days 43-49
     Route: 048
  3. ATAZANAVIR [Interacting]
     Indication: PRODUCT USED FOR UNKNOWN INDICATION
     Route: 065
  4. RITONAVIR [Interacting]
     Indication: PRODUCT USED FOR UNKNOWN INDICATION
     Dosage: on days 29-42
     Route: 065

REACTIONS (3)
  - Blood bilirubin increased [Recovered/Resolved]
  - Bilirubin conjugated increased [Unknown]
  - Drug interaction [Unknown]
